FAERS Safety Report 5551416-1 (Version None)
Quarter: 2007Q4

REPORT INFORMATION
  Report Type: 
  Country: None (occurrence: None)
  Receive Date: 20071129
  Receipt Date: 20070406
  Transmission Date: 20080405
  Serious: Yes (Other)
  Sender: FDA-Public Use
  Company Number: PHEH2007US02035

PATIENT
  Age: 46 Year
  Sex: Female

DRUGS (1)
  1. LAMISIL [Suspect]
     Indication: ONYCHOMYCOSIS
     Dosage: 250 MG, QD, ORAL
     Route: 048
     Dates: start: 20070115, end: 20070204

REACTIONS (18)
  - ANOREXIA [None]
  - DRUG HYPERSENSITIVITY [None]
  - DRY SKIN [None]
  - DYSGEUSIA [None]
  - DYSPNOEA [None]
  - ERYTHEMA [None]
  - ERYTHEMA MULTIFORME [None]
  - FATIGUE [None]
  - OEDEMA MOUTH [None]
  - ORAL PAIN [None]
  - PHARYNGEAL OEDEMA [None]
  - RASH GENERALISED [None]
  - RASH PRURITIC [None]
  - SCAR [None]
  - SKIN BURNING SENSATION [None]
  - SKIN EXFOLIATION [None]
  - SKIN HYPERPIGMENTATION [None]
  - SKIN TIGHTNESS [None]
